FAERS Safety Report 4509152-6 (Version None)
Quarter: 2005Q1

REPORT INFORMATION
  Report Type: 
  Country: None (occurrence: None)
  Receive Date: 20041025
  Receipt Date: 20040723
  Transmission Date: 20050727
  Serious: Yes (Life-Threatening, Hospitalization, Disabling)
  Sender: FDA-Public Use
  Company Number: US-JNJFOC-20040604559

PATIENT
  Age: 57 Year
  Sex: Female
  Weight: 103.4201 kg

DRUGS (4)
  1. INFLIXIMAB (INFLIXIMAB, RECOMBINANT) LYOPHILIZED POWDER [Suspect]
     Indication: CROHN'S DISEASE
     Dosage: 5 MG/KG, INTRAVENOUS
     Route: 042
     Dates: start: 20020422
  2. METHOTREXATE [Concomitant]
  3. NARCOTIC ANALGESICS (ANALGESICS) [Concomitant]
  4. ANTISPASMOTICS (ANTISPASMODICS, ANTICHOLINGERGICS) [Concomitant]

REACTIONS (1)
  - INTESTINAL OBSTRUCTION [None]
